FAERS Safety Report 4962397-3 (Version None)
Quarter: 2006Q1

REPORT INFORMATION
  Report Type: 
  Country: None (occurrence: None)
  Receive Date: 20060329
  Receipt Date: 20060314
  Transmission Date: 20060701
  Serious: Yes (Death)
  Sender: FDA-Public Use
  Company Number: 2006S1002234

PATIENT
  Age: 54 Year
  Sex: Female

DRUGS (7)
  1. CLOZAPINE [Suspect]
     Dosage: 700 MG; QD; ORAL
     Route: 048
     Dates: start: 20040301, end: 20060301
  2. BENZTROPINE MESYLATE [Concomitant]
  3. ESCITALOPRAM OXALATE [Concomitant]
  4. BUPROPION HYDROCHLORIDE [Concomitant]
  5. LANSOPRAZOLE [Concomitant]
  6. HYDROCHLOROTHIAZIDE [Concomitant]
  7. FLUPHENAZINE [Concomitant]

REACTIONS (1)
  - DEATH [None]
